FAERS Safety Report 4938680-4 (Version None)
Quarter: 2006Q1

REPORT INFORMATION
  Report Type: 
  Country: None (occurrence: None)
  Receive Date: 20060127
  Receipt Date: 20051027
  Transmission Date: 20060701
  Serious: Yes (Other)
  Sender: FDA-Public Use
  Company Number: 2005148454

PATIENT
  Age: 68 Year
  Sex: Female
  Weight: 81.6475 kg

DRUGS (6)
  1. LYRICA [Suspect]
     Indication: ILL-DEFINED DISORDER
     Dosage: 150 MG (75 MG,2 IN 1 D),ORAL
     Route: 048
     Dates: start: 20050901
  2. LORAZEPAM [Concomitant]
  3. LIPITOR [Concomitant]
  4. DIAZEPAM [Concomitant]
  5. TRAZODONE HCL [Concomitant]
  6. GABITRIL [Concomitant]

REACTIONS (1)
  - STOMACH DISCOMFORT [None]
